FAERS Safety Report 4553211-9 (Version None)
Quarter: 2005Q1

REPORT INFORMATION
  Report Type: 
  Country: None (occurrence: None)
  Receive Date: 20050113
  Receipt Date: 20041229
  Transmission Date: 20050727
  Serious: Yes (Other)
  Sender: FDA-Public Use
  Company Number: 2004241845US

PATIENT
  Age: 67 Year
  Sex: Female
  Weight: 61.22 kg

DRUGS (5)
  1. BEXTRA [Suspect]
     Indication: OSTEOARTHRITIS
     Dosage: 10 MG (10 MG, 1 IN 1 D), ORAL
     Route: 048
     Dates: start: 20041027, end: 20041027
  2. FOSINOPRIL SODIUM [Concomitant]
  3. ATENOLOL [Concomitant]
  4. LEVOTHYROXINE SODIUM [Concomitant]
  5. CLONIDINE [Concomitant]

REACTIONS (3)
  - OROPHARYNGEAL SWELLING [None]
  - REACTION TO MEDICAL AGENT PRESERVATIVES [None]
  - THROAT IRRITATION [None]
